FAERS Safety Report 9880933 (Version 1)
Quarter: 2014Q1

REPORT INFORMATION
  Report Type: Spontaneous
  Country: GR (occurrence: GR)
  Receive Date: 20140207
  Receipt Date: 20140207
  Transmission Date: 20141002
  Serious: Yes (Other)
  Sender: FDA-Public Use
  Company Number: GR-B.I. PHARMACEUTICALS,INC./RIDGEFIELD-2014-BI-05061GB

PATIENT
  Age: 31 Year
  Sex: Male

DRUGS (2)
  1. PRADAXA [Suspect]
     Indication: HIGH FREQUENCY ABLATION
     Dosage: 220 MG
     Route: 048
     Dates: start: 20140201, end: 20140202
  2. PRADAXA [Suspect]
     Indication: ATRIAL FIBRILLATION

REACTIONS (8)
  - Hemianopia [Recovered/Resolved]
  - Hemianopia [Recovered/Resolved]
  - Hemianopia [Recovered/Resolved]
  - Headache [Recovered/Resolved]
  - Headache [Recovered/Resolved]
  - Headache [Recovered/Resolved]
  - Off label use [Recovered/Resolved]
  - Off label use [Recovered/Resolved]
